FAERS Safety Report 7595890-8 (Version None)
Quarter: 2011Q3

REPORT INFORMATION
  Report Type: 
  Country: None (occurrence: None)
  Receive Date: 20110707
  Receipt Date: 20110628
  Transmission Date: 20111222
  Serious: Yes (Other)
  Sender: FDA-Public Use
  Company Number: PHHY2011GB56913

PATIENT
  Age: 33 Year
  Sex: Female
  Weight: 63 kg

DRUGS (3)
  1. MIRTAZAPINE [Concomitant]
  2. VENLAFAXINE [Suspect]
     Indication: DEPRESSION
     Dosage: 75 MG, UNK
     Route: 048
     Dates: start: 20110406, end: 20110420
  3. VENLAFAXINE [Suspect]
     Dosage: 15 MG, UNK
     Route: 048
     Dates: start: 20110420

REACTIONS (1)
  - PHOTODERMATOSIS [None]
